FAERS Safety Report 11776456 (Version 2)
Quarter: 2015Q4

REPORT INFORMATION
  Report Type: Spontaneous
  Country: US (occurrence: US)
  Receive Date: 20151125
  Receipt Date: 20151215
  Transmission Date: 20160304
  Serious: No
  Sender: FDA-Public Use
  Company Number: US-ASTRAZENECA-2015SF06690

PATIENT
  Age: 1895 Day
  Sex: Male
  Weight: 20 kg

DRUGS (7)
  1. PULMICORT FLEXHALER [Suspect]
     Active Substance: BUDESONIDE
     Indication: ASTHMA
     Route: 055
     Dates: start: 20151031
  2. CHILDREN CLARITIN ALLERGY [Concomitant]
     Active Substance: LORATADINE
     Indication: SNEEZING
     Route: 048
     Dates: start: 2014
  3. CHILDREN CLARITIN ALLERGY [Concomitant]
     Active Substance: LORATADINE
     Indication: COUGH
     Route: 048
     Dates: start: 2014
  4. MULTIVITAMIN [Concomitant]
     Active Substance: VITAMINS
     Dosage: DAILY
  5. CHILDREN CLARITIN ALLERGY [Concomitant]
     Active Substance: LORATADINE
     Indication: RHINORRHOEA
     Route: 048
     Dates: start: 2014
  6. BACAMPICILLIN [Suspect]
     Active Substance: BACAMPICILLIN
     Dates: start: 2015, end: 20151031
  7. ALBUTEROL. [Concomitant]
     Active Substance: ALBUTEROL
     Indication: DYSPNOEA
     Dosage: 1 AMPULE EVERY 4 - 6 HOURS
     Route: 055
     Dates: start: 201101

REACTIONS (12)
  - Vomiting [Not Recovered/Not Resolved]
  - Device failure [Unknown]
  - Off label use [Unknown]
  - Product quality issue [Unknown]
  - Sneezing [Unknown]
  - Drug prescribing error [Unknown]
  - Dysgeusia [Unknown]
  - Retching [Not Recovered/Not Resolved]
  - Cough [Not Recovered/Not Resolved]
  - Drug administered to patient of inappropriate age [Unknown]
  - Drug ineffective [Unknown]
  - Intentional product misuse [Unknown]

NARRATIVE: CASE EVENT DATE: 20151031
